FAERS Safety Report 7015079-0 (Version None)
Quarter: 2010Q3

REPORT INFORMATION
  Report Type: 
  Country: None (occurrence: None)
  Receive Date: 20100927
  Receipt Date: 20100924
  Transmission Date: 20110219
  Serious: Yes (Hospitalization, Other)
  Sender: FDA-Public Use
  Company Number: DE-SANOFI-AVENTIS-2010SA044011

PATIENT
  Age: 49 Year
  Sex: Female
  Weight: 60 kg

DRUGS (6)
  1. MULTAQ [Suspect]
     Indication: ATRIAL FIBRILLATION
     Dosage: 1-2X1 FILM-COATED TABLET DAILY PER OS
     Route: 048
     Dates: start: 20100619, end: 20100620
  2. CORDAREX [Suspect]
     Route: 042
     Dates: start: 20100618, end: 20100618
  3. ETOMIDAT-LIPURO [Suspect]
     Route: 042
     Dates: start: 20100618, end: 20100618
  4. MIDAZOLAM HCL [Suspect]
     Route: 042
     Dates: start: 20100618, end: 20100618
  5. MARCUMAR [Concomitant]
     Dosage: SINGLE DOSE DIFFERENT: 0.75-6 MG DAILY, SEVERAL BREAKS
     Route: 048
     Dates: start: 20100608
  6. METOHEXAL [Concomitant]
     Indication: PRODUCT USED FOR UNKNOWN INDICATION
     Route: 048
     Dates: start: 20100608, end: 20100621

REACTIONS (7)
  - ALANINE AMINOTRANSFERASE INCREASED [None]
  - ASPARTATE AMINOTRANSFERASE INCREASED [None]
  - DIARRHOEA [None]
  - GAMMA-GLUTAMYLTRANSFERASE INCREASED [None]
  - HEPATITIS [None]
  - NAUSEA [None]
  - VOMITING [None]
